FAERS Safety Report 8856268 (Version 2)
Quarter: 2013Q1

REPORT INFORMATION
  Report Type: Spontaneous
  Country: US (occurrence: None)
  Receive Date: 20121019
  Receipt Date: 20130114
  Transmission Date: 20140127
  Serious: Yes (Death, Hospitalization, Other)
  Sender: FDA-Public Use
  Company Number: TPA2012A08040

PATIENT
  Age: 73 Year
  Sex: Female
  Weight: 70.31 kg

DRUGS (2)
  1. ACTOS (PIOGLITAZONE HYDROCHLORIDE) [Suspect]
     Indication: TYPE 2 DIABETES MELLITUS
     Dates: start: 20030908, end: 200401
  2. GLUCOPHAGE(METFORMIN HYDROCHLORIDE) [Concomitant]
     Dates: start: 20030908, end: 200401

REACTIONS (1)
  - Bladder cancer [None]
